FAERS Safety Report 19755830 (Version 1)
Quarter: 2021Q3

REPORT INFORMATION
  Report Type: Spontaneous
  Country: IN (occurrence: IN)
  Receive Date: 20210827
  Receipt Date: 20210827
  Transmission Date: 20211014
  Serious: Yes (Hospitalization)
  Sender: FDA-Public Use
  Company Number: IN-PFIZER INC-202101078832

PATIENT
  Age: 73 Year
  Sex: Female

DRUGS (7)
  1. MEROPENEM. [Suspect]
     Active Substance: MEROPENEM
     Dosage: 1 G, 2X/DAY
     Route: 042
  2. FLUCONAZOLE. [Suspect]
     Active Substance: FLUCONAZOLE
     Dosage: 200 MG, 2X/DAY
     Route: 042
  3. CANDID [CLOTRIMAZOLE] [Suspect]
     Active Substance: CLOTRIMAZOLE
     Dosage: L/A BD
  4. PAN (PANTOPRAZOLE SODIUM SESQUIHYDRATE) [Suspect]
     Active Substance: PANTOPRAZOLE SODIUM
     Dosage: 40 MG, 2X/DAY
     Route: 042
  5. EMESET [Suspect]
     Active Substance: ONDANSETRON HYDROCHLORIDE
     Dosage: 8 MG, 3X/DAY
     Route: 042
  6. FILGRASTIM [Suspect]
     Active Substance: FILGRASTIM
     Dosage: (300 MCG) C BD
  7. ORAWAYS (TRIAMCINOLONE) [Suspect]
     Active Substance: TRIAMCINOLONE
     Dosage: L/ A BD

REACTIONS (3)
  - Decreased appetite [Unknown]
  - Constipation [Unknown]
  - Mouth ulceration [Unknown]

NARRATIVE: CASE EVENT DATE: 2021
